FAERS Safety Report 5170364-2 (Version None)
Quarter: 2006Q4

REPORT INFORMATION
  Report Type: 
  Country: None (occurrence: None)
  Receive Date: 20061204
  Receipt Date: 20061127
  Transmission Date: 20070319
  Serious: Yes (Death)
  Sender: FDA-Public Use
  Company Number: 2006133022

PATIENT
  Age: 80 Year
  Sex: Male
  Weight: 85 kg

DRUGS (4)
  1. INSPRA [Suspect]
     Indication: CARDIAC FAILURE
     Dosage: 25 MG, ORAL
     Route: 048
     Dates: start: 20051220
  2. ANGIOTENSIN II ANTAGONISTS (ANGIOTENSIN II ANTAGONISTS) [Concomitant]
  3. BETA BLOCKING AGENTS (BETA BLOCKER AGENTS) [Concomitant]
  4. DIURETICS (DIURETICS) [Concomitant]

REACTIONS (6)
  - CEREBRAL HAEMORRHAGE [None]
  - DIALYSIS [None]
  - FALL [None]
  - RENAL FAILURE [None]
  - SOMNOLENCE [None]
  - TRAUMATIC BRAIN INJURY [None]
